FAERS Safety Report 6943603-2 (Version None)
Quarter: 2010Q3

REPORT INFORMATION
  Report Type: 
  Country: None (occurrence: None)
  Receive Date: 20100826
  Receipt Date: 20100819
  Transmission Date: 20110219
  Serious: Yes (Hospitalization, Disabling)
  Sender: FDA-Public Use
  Company Number: FR-BAXTER-2010BH021980

PATIENT
  Age: 90 Year
  Sex: Female

DRUGS (4)
  1. CYCLOPHOSPHAMIDE [Suspect]
     Indication: WEGENER'S GRANULOMATOSIS
     Route: 042
     Dates: start: 20100707, end: 20100707
  2. CYCLOPHOSPHAMIDE [Suspect]
     Route: 042
     Dates: start: 20100721, end: 20100721
  3. METHYLPREDNISOLONE [Suspect]
     Indication: WEGENER'S GRANULOMATOSIS
     Route: 065
     Dates: start: 20100101
  4. METHYLPREDNISOLONE [Suspect]
     Route: 042
     Dates: start: 20100703, end: 20100706

REACTIONS (1)
  - DEMENTIA [None]
